FAERS Safety Report 8895925 (Version 2)
Quarter: 2014Q3

REPORT INFORMATION
  Report Type: Spontaneous
  Country: US (occurrence: US)
  Receive Date: 20121108
  Receipt Date: 20140828
  Transmission Date: 20150326
  Serious: Yes (Other)
  Sender: FDA-Public Use
  Company Number: US-009507513-1211USA003729

PATIENT
  Sex: Female

DRUGS (1)
  1. NUVARING [Suspect]
     Active Substance: ETHINYL ESTRADIOL\ETONOGESTREL
     Dosage: UNK
     Route: 067
     Dates: start: 201006

REACTIONS (3)
  - Thrombosis [Unknown]
  - Cerebrovascular accident [Unknown]
  - Emotional disorder [Unknown]

NARRATIVE: CASE EVENT DATE: 20101127
